FAERS Safety Report 9696089 (Version 2)
Quarter: 2014Q1

REPORT INFORMATION
  Report Type: Spontaneous
  Country: GB (occurrence: GB)
  Receive Date: 20131119
  Receipt Date: 20140210
  Transmission Date: 20141002
  Serious: Yes (Other)
  Sender: FDA-Public Use
  Company Number: GB-GLAXOSMITHKLINE-B0941212A

PATIENT
  Age: 7 Year
  Sex: Female

DRUGS (1)
  1. SERETIDE [Suspect]
     Indication: VIRAL INFECTION
     Route: 055
     Dates: start: 201304

REACTIONS (5)
  - Asthenopia [Recovered/Resolved]
  - Disturbance in attention [Recovered/Resolved]
  - Confusional state [Recovered/Resolved]
  - Fatigue [Recovered/Resolved]
  - Thirst [Recovered/Resolved]
